FAERS Safety Report 20143097 (Version 2)
Quarter: 2021Q4

REPORT INFORMATION
  Report Type: Spontaneous
  Country: IT (occurrence: IT)
  Receive Date: 20211203
  Receipt Date: 20211207
  Transmission Date: 20220303
  Serious: Yes (Death, Other)
  Sender: FDA-Public Use
  Company Number: None

PATIENT
  Age: 72 Year
  Sex: Male

DRUGS (1)
  1. OPDIVO [Suspect]
     Active Substance: NIVOLUMAB
     Indication: Lung adenocarcinoma
     Dosage: 240 MILLIGRAM, CYCLICAL
     Route: 042
     Dates: start: 20201231, end: 20210114

REACTIONS (4)
  - Autoimmune myositis [Fatal]
  - Autoimmune hepatitis [Fatal]
  - Autoimmune myocarditis [Fatal]
  - Transaminases increased [Fatal]

NARRATIVE: CASE EVENT DATE: 20210203
